FAERS Safety Report 21042865 (Version 1)
Quarter: 2022Q3

REPORT INFORMATION
  Report Type: Other
  Country: US (occurrence: US)
  Receive Date: 20220705
  Receipt Date: 20220705
  Transmission Date: 20221027
  Serious: Yes (Other)
  Sender: FDA-Public Use
  Company Number: US-HLS-202200670

PATIENT
  Age: 61 Year
  Sex: Female

DRUGS (7)
  1. CLOZAPINE [Suspect]
     Active Substance: CLOZAPINE
     Indication: Schizophrenia
     Dosage: 12.5MG DAILY WAS STEADILY INCREASED (EXACT DOSAGES NOT PROVIDED) UP TO 125MG; PATIENT WAS LATER ON C
     Route: 048
  2. UNSPECIFIED INGREDIENT [Concomitant]
     Active Substance: UNSPECIFIED INGREDIENT
     Indication: Prophylaxis
     Dosage: UNKNOWN
     Route: 065
  3. UNSPECIFIED INGREDIENT [Concomitant]
     Active Substance: UNSPECIFIED INGREDIENT
     Indication: Prophylaxis
     Dosage: UNKNOWN
     Route: 065
  4. UNSPECIFIED INGREDIENT [Concomitant]
     Active Substance: UNSPECIFIED INGREDIENT
     Indication: Product used for unknown indication
     Dosage: TOTAL DAILY DOSE OF 150 MG
     Route: 065
  5. UNSPECIFIED INGREDIENT [Concomitant]
     Active Substance: UNSPECIFIED INGREDIENT
     Indication: Product used for unknown indication
     Dosage: 750MG
     Route: 065
  6. UNSPECIFIED INGREDIENT [Concomitant]
     Active Substance: UNSPECIFIED INGREDIENT
     Indication: Agitation
     Dosage: UNKNOWN
     Route: 065
  7. UNSPECIFIED INGREDIENT [Concomitant]
     Active Substance: UNSPECIFIED INGREDIENT
     Indication: Product used for unknown indication
     Dosage: UNKNOWN
     Route: 065

REACTIONS (10)
  - Agitation [Recovering/Resolving]
  - Anaemia [Unknown]
  - Delusion [Unknown]
  - Oesophageal mucosal blister [Unknown]
  - Oesophagitis [Unknown]
  - Pyrexia [Unknown]
  - Haematemesis [Recovered/Resolved]
  - Hypoalbuminaemia [Unknown]
  - Tachycardia [Unknown]
  - Leukocytosis [Unknown]
